FAERS Safety Report 4823272-8 (Version None)
Quarter: 2005Q4

REPORT INFORMATION
  Report Type: 
  Country: None (occurrence: None)
  Receive Date: 20051107
  Receipt Date: 20051025
  Transmission Date: 20060501
  Serious: Yes (Death, Other)
  Sender: FDA-Public Use
  Company Number: 2005146500

PATIENT
  Sex: Male

DRUGS (2)
  1. ATARAX [Suspect]
     Indication: ILL-DEFINED DISORDER
     Dosage: (100 MG,)
     Route: 048
  2. MEPERIDINE HCL [Suspect]
     Indication: ILL-DEFINED DISORDER
     Dosage: (100 MG,

REACTIONS (1)
  - POST PROCEDURAL COMPLICATION [None]
